FAERS Safety Report 13858190 (Version 1)
Quarter: 2017Q3

REPORT INFORMATION
  Report Type: Spontaneous
  Country: US (occurrence: US)
  Receive Date: 20170810
  Receipt Date: 20170810
  Transmission Date: 20171127
  Serious: Yes (Disabling)
  Sender: FDA-Public Use
  Company Number: None

PATIENT
  Age: 64 Year
  Sex: Female
  Weight: 94.5 kg

DRUGS (13)
  1. PREDNISOLONE. [Concomitant]
     Active Substance: PREDNISOLONE
  2. CELEBREX [Concomitant]
     Active Substance: CELECOXIB
  3. FLUOXETINE [Concomitant]
     Active Substance: FLUOXETINE HYDROCHLORIDE
  4. VITAMIN D [Concomitant]
     Active Substance: CHOLECALCIFEROL
  5. VYTORIN [Concomitant]
     Active Substance: EZETIMIBE\SIMVASTATIN
  6. NIACIN. [Concomitant]
     Active Substance: NIACIN
  7. LISINOPRIL. [Concomitant]
     Active Substance: LISINOPRIL
  8. VIT B COMPLEX [Concomitant]
  9. ACETAZOLAMIDE ER 500 MG [Suspect]
     Active Substance: ACETAZOLAMIDE
     Indication: GLAUCOMA
     Dosage: ?          QUANTITY:1 CAPSULE(S);?
     Route: 048
     Dates: start: 20170502, end: 20170604
  10. LATANAPROST [Concomitant]
     Active Substance: LATANOPROST
  11. TIMOLOL. [Concomitant]
     Active Substance: TIMOLOL
  12. VICODIN [Concomitant]
     Active Substance: ACETAMINOPHEN\HYDROCODONE BITARTRATE
  13. ZANAFLEX [Concomitant]
     Active Substance: TIZANIDINE HYDROCHLORIDE

REACTIONS (8)
  - Abdominal distension [None]
  - Asthenia [None]
  - Fatigue [None]
  - Nausea [None]
  - Abdominal pain [None]
  - Decreased appetite [None]
  - Constipation [None]
  - Dyspnoea exertional [None]

NARRATIVE: CASE EVENT DATE: 20170503
